FAERS Safety Report 5609459-5 (Version None)
Quarter: 2008Q1

REPORT INFORMATION
  Report Type: 
  Country: None (occurrence: None)
  Receive Date: 20080131
  Receipt Date: 20080126
  Transmission Date: 20080703
  Serious: Yes (Other)
  Sender: FDA-Public Use
  Company Number: JP-ASTRAZENECA-2008AP00648

PATIENT
  Age: 50 Year
  Sex: Male

DRUGS (2)
  1. TENORMIN [Suspect]
     Route: 048
     Dates: start: 20071101, end: 20071205
  2. TENORMIN [Suspect]
     Route: 048
     Dates: start: 20071206

REACTIONS (1)
  - HYPERCHOLESTEROLAEMIA [None]
